FAERS Safety Report 22351348 (Version 3)
Quarter: 2024Q1

REPORT INFORMATION
  Report Type: Spontaneous
  Country: US (occurrence: US)
  Receive Date: 20230522
  Receipt Date: 20240109
  Transmission Date: 20240410
  Serious: Yes (Other)
  Sender: FDA-Public Use
  Company Number: US-Stemline Therapeutics, Inc.-2023ST000629

PATIENT
  Age: 63 Year
  Sex: Female

DRUGS (1)
  1. ORSERDU [Suspect]
     Active Substance: ELACESTRANT
     Indication: Product used for unknown indication
     Route: 048
     Dates: start: 20230327

REACTIONS (4)
  - Foreign body in throat [Not Recovered/Not Resolved]
  - Product dose omission issue [Recovered/Resolved]
  - Product use complaint [Not Recovered/Not Resolved]
  - Urinary tract infection [Not Recovered/Not Resolved]
